FAERS Safety Report 7457401-7 (Version None)
Quarter: 2011Q2

REPORT INFORMATION
  Report Type: 
  Country: None (occurrence: None)
  Receive Date: 20110503
  Receipt Date: 20110503
  Transmission Date: 20111010
  Serious: Yes (Other)
  Sender: FDA-Public Use
  Company Number: None

PATIENT
  Age: 64 Year
  Sex: Female

DRUGS (1)
  1. VERSED [Suspect]
     Indication: GASTROINTESTINAL SURGERY
     Dosage: 4MG
     Dates: start: 20110127, end: 20110127

REACTIONS (1)
  - OXYGEN SATURATION DECREASED [None]
